FAERS Safety Report 12542507 (Version 2)
Quarter: 2019Q2

REPORT INFORMATION
  Report Type: Spontaneous
  Country: US (occurrence: US)
  Receive Date: 20160709
  Receipt Date: 20190523
  Transmission Date: 20190711
  Serious: Yes (Death, Hospitalization, Other)
  Sender: FDA-Public Use
  Company Number: US-CIPLA LTD.-2016US09315

PATIENT

DRUGS (3)
  1. GEMCITABINE [Suspect]
     Active Substance: GEMCITABINE\GEMCITABINE HYDROCHLORIDE
     Indication: ANGIOSARCOMA
     Dosage: UNK, 14 CYCLES
     Route: 065
  2. DOCETAXEL. [Suspect]
     Active Substance: DOCETAXEL
     Indication: ANGIOSARCOMA
     Dosage: UNK, INTERMITTENT DOSES, 14 CYCLES
     Route: 065
  3. DOXORUBICIN                        /00330902/ [Suspect]
     Active Substance: DOXORUBICIN
     Indication: ANGIOSARCOMA
     Dosage: UNK, 14 CYCLES
     Route: 065

REACTIONS (3)
  - Ascites [Unknown]
  - Hepatic failure [Fatal]
  - Bone marrow failure [Unknown]
